FAERS Safety Report 7483629-6 (Version None)
Quarter: 2011Q2

REPORT INFORMATION
  Report Type: 
  Country: None (occurrence: None)
  Receive Date: 20110517
  Receipt Date: 20110512
  Transmission Date: 20111010
  Serious: No
  Sender: FDA-Public Use
  Company Number: US-PFIZER INC-2011102777

PATIENT
  Sex: Female
  Weight: 63.5 kg

DRUGS (2)
  1. LIPITOR [Suspect]
     Indication: ANGIOPATHY
     Dosage: 10 MG, 1X/DAY
     Route: 048
     Dates: start: 20100101
  2. MULTI-VITAMINS [Concomitant]
     Indication: MACULAR HOLE
     Dosage: UNK

REACTIONS (2)
  - URTICARIA [None]
  - RASH [None]
